FAERS Safety Report 7297655-3 (Version None)
Quarter: 2011Q1

REPORT INFORMATION
  Report Type: 
  Country: None (occurrence: None)
  Receive Date: 20110216
  Receipt Date: 20110214
  Transmission Date: 20110831
  Serious: Yes (Hospitalization)
  Sender: FDA-Public Use
  Company Number: IT-MERCK-1102ITA00004

PATIENT
  Age: 59 Year
  Sex: Male

DRUGS (7)
  1. DOPAMINE HYDROCHLORIDE [Concomitant]
     Route: 065
  2. SODIUM BICARBONATE [Concomitant]
     Route: 065
  3. HYDROCORTISONE SODIUM SUCCINATE [Concomitant]
     Route: 065
  4. DEXAMETHASONE SODIUM PHOSPHATE [Concomitant]
     Route: 065
  5. PRIMAXIN [Suspect]
     Indication: SEPSIS
     Route: 041
     Dates: start: 20110123, end: 20110125
  6. ONDANSETRON HYDROCHLORIDE [Concomitant]
     Route: 065
  7. ALBUMIN HUMAN [Concomitant]
     Route: 065

REACTIONS (1)
  - ERYTHEMA [None]
